FAERS Safety Report 4957442-5 (Version None)
Quarter: 2006Q1

REPORT INFORMATION
  Report Type: 
  Country: None (occurrence: None)
  Receive Date: 20060327
  Receipt Date: 20060315
  Transmission Date: 20060701
  Serious: Yes (Other)
  Sender: FDA-Public Use
  Company Number: 2006BH006050

PATIENT
  Age: 73 Year
  Sex: Female

DRUGS (1)
  1. HEPARIN SODIUM [Suspect]
     Indication: ANTICOAGULANT THERAPY

REACTIONS (1)
  - HEPARIN-INDUCED THROMBOCYTOPENIA [None]
